FAERS Safety Report 17393663 (Version 1)
Quarter: 2020Q1

REPORT INFORMATION
  Report Type: Spontaneous
  Country: US (occurrence: US)
  Receive Date: 20200209
  Receipt Date: 20200209
  Transmission Date: 20200409
  Serious: Yes (Other)
  Sender: FDA-Public Use
  Company Number: US-TEVA-2020-US-1179267

PATIENT
  Age: 93 Year
  Sex: Male

DRUGS (1)
  1. ALBUTEROL INHALER [Suspect]
     Active Substance: ALBUTEROL
     Route: 065

REACTIONS (2)
  - Respiratory tract infection [Unknown]
  - Dyspnoea [Unknown]
